FAERS Safety Report 23989381 (Version 1)
Quarter: 2024Q2

REPORT INFORMATION
  Report Type: Spontaneous
  Country: US (occurrence: US)
  Receive Date: 20240619
  Receipt Date: 20240619
  Transmission Date: 20240716
  Serious: No
  Sender: FDA-Public Use
  Company Number: US-009507513-2406USA004143

PATIENT
  Age: 78 Year
  Sex: Male
  Weight: 118.82 kg

DRUGS (1)
  1. CUBICIN [Suspect]
     Active Substance: DAPTOMYCIN
     Indication: Corynebacterium infection
     Dosage: 500 MILLIGRAM, QD
     Route: 042

REACTIONS (1)
  - Off label use [Unknown]
